FAERS Safety Report 8854663 (Version 1)
Quarter: 2012Q4

REPORT INFORMATION
  Report Type: 
  Country: US (occurrence: US)
  Receive Date: 20121023
  Receipt Date: 20121023
  Transmission Date: 20130627
  Serious: No
  Sender: FDA-Public Use
  Company Number: US-009507513-1210USA005595

PATIENT
  Sex: Male

DRUGS (2)
  1. RIBAVIRIN [Suspect]
     Dosage: UNK
     Dates: start: 20050101, end: 20060501
  2. PEGASYS [Suspect]
     Indication: HEPATITIS C
     Dosage: UNK
     Dates: start: 20050101, end: 20060501

REACTIONS (1)
  - Hepatitis C [Unknown]
